FAERS Safety Report 4461601-8 (Version None)
Quarter: 2004Q3

REPORT INFORMATION
  Report Type: 
  Country: None (occurrence: None)
  Receive Date: 20040924
  Receipt Date: 20040924
  Transmission Date: 20050211
  Serious: Yes (Hospitalization, Disabling)
  Sender: FDA-Public Use
  Company Number: None

PATIENT
  Sex: Female
  Weight: 113.3993 kg

DRUGS (3)
  1. VIOXX [Suspect]
     Indication: ARTHRALGIA
     Dosage: 1 TABLET DAILY ORAL
     Route: 048
     Dates: start: 20031121, end: 20040922
  2. VIOXX [Suspect]
     Indication: BURSITIS
     Dosage: 1 TABLET DAILY ORAL
     Route: 048
     Dates: start: 20031121, end: 20040922
  3. VIOXX [Suspect]
     Indication: PAIN IN EXTREMITY
     Dosage: 1 TABLET DAILY ORAL
     Route: 048
     Dates: start: 20031121, end: 20040922

REACTIONS (4)
  - BLOOD PRESSURE INADEQUATELY CONTROLLED [None]
  - CHEST PAIN [None]
  - GALLBLADDER DISORDER [None]
  - HEART RATE DECREASED [None]
